FAERS Safety Report 12513976 (Version 5)
Quarter: 2018Q4

REPORT INFORMATION
  Report Type: Spontaneous
  Country: US (occurrence: US)
  Receive Date: 20160630
  Receipt Date: 20181116
  Transmission Date: 20190204
  Serious: Yes (Hospitalization, Other)
  Sender: FDA-Public Use
  Company Number: US-JNJFOC-20160423128

PATIENT
  Age: 67 Year
  Sex: Male

DRUGS (12)
  1. XARELTO [Suspect]
     Active Substance: RIVAROXABAN
     Indication: ATRIAL FIBRILLATION
     Route: 048
     Dates: start: 201304, end: 20140417
  2. XARELTO [Suspect]
     Active Substance: RIVAROXABAN
     Indication: CARDIAC FAILURE CONGESTIVE
     Route: 048
     Dates: start: 20130201
  3. XARELTO [Suspect]
     Active Substance: RIVAROXABAN
     Indication: ANTICOAGULANT THERAPY
     Route: 048
     Dates: start: 20130201
  4. XARELTO [Suspect]
     Active Substance: RIVAROXABAN
     Indication: ANTICOAGULANT THERAPY
     Route: 048
     Dates: start: 201304, end: 20140417
  5. BABY ASPIRIN [Suspect]
     Active Substance: ASPIRIN
     Indication: PRODUCT USED FOR UNKNOWN INDICATION
     Route: 048
  6. XARELTO [Suspect]
     Active Substance: RIVAROXABAN
     Indication: CARDIAC FAILURE CONGESTIVE
     Route: 048
     Dates: start: 201304, end: 20140417
  7. XARELTO [Suspect]
     Active Substance: RIVAROXABAN
     Indication: CORONARY ARTERY DISEASE
     Route: 048
     Dates: start: 20130201
  8. XARELTO [Suspect]
     Active Substance: RIVAROXABAN
     Indication: CEREBROVASCULAR ACCIDENT PROPHYLAXIS
     Route: 048
     Dates: start: 201304, end: 20140417
  9. XARELTO [Suspect]
     Active Substance: RIVAROXABAN
     Indication: ATRIAL FIBRILLATION
     Route: 048
     Dates: start: 20130201
  10. XARELTO [Suspect]
     Active Substance: RIVAROXABAN
     Indication: CEREBROVASCULAR ACCIDENT PROPHYLAXIS
     Route: 048
     Dates: start: 20130201
  11. BABY ASPIRIN [Suspect]
     Active Substance: ASPIRIN
     Indication: PRODUCT USED FOR UNKNOWN INDICATION
     Route: 048
     Dates: start: 20140418
  12. XARELTO [Suspect]
     Active Substance: RIVAROXABAN
     Indication: CORONARY ARTERY DISEASE
     Route: 048
     Dates: start: 201304, end: 20140417

REACTIONS (5)
  - Acute kidney injury [Recovering/Resolving]
  - Thrombotic thrombocytopenic purpura [Unknown]
  - Cerebral haemorrhage [Unknown]
  - Gastrointestinal haemorrhage [Recovering/Resolving]
  - Haemorrhage urinary tract [Unknown]

NARRATIVE: CASE EVENT DATE: 20140416
